FAERS Safety Report 4395466-X (Version None)
Quarter: 2004Q3

REPORT INFORMATION
  Report Type: 
  Country: None (occurrence: None)
  Receive Date: 20040712
  Receipt Date: 20040712
  Transmission Date: 20050211
  Serious: Yes (Life-Threatening, Hospitalization, Disabling)
  Sender: FDA-Public Use
  Company Number: None

PATIENT
  Age: 39 Year
  Sex: Female
  Weight: 83.4619 kg

DRUGS (3)
  1. PROZAC [Suspect]
     Indication: DEPRESSION
     Dosage: 40 MG ONCE DAILY ORAL
     Route: 048
     Dates: start: 20000525, end: 20010430
  2. IMITREX [Concomitant]
  3. ALLEGRA [Concomitant]

REACTIONS (23)
  - AMNESIA [None]
  - ANXIETY [None]
  - CHILD ABUSE [None]
  - CRYING [None]
  - DELUSIONAL PERCEPTION [None]
  - DISSOCIATION [None]
  - DISTURBANCE IN ATTENTION [None]
  - DRUG INEFFECTIVE [None]
  - DYSKINESIA [None]
  - FEELING ABNORMAL [None]
  - HALLUCINATION, AUDITORY [None]
  - IMPRISONMENT [None]
  - INSOMNIA [None]
  - LEGAL PROBLEM [None]
  - MEDICATION ERROR [None]
  - NIGHTMARE [None]
  - OVERDOSE [None]
  - PARAESTHESIA [None]
  - PHYSICAL ASSAULT [None]
  - PSYCHIATRIC SYMPTOM [None]
  - SUICIDE ATTEMPT [None]
  - THINKING ABNORMAL [None]
  - TINNITUS [None]
